FAERS Safety Report 24431042 (Version 1)
Quarter: 2024Q4

REPORT INFORMATION
  Report Type: Spontaneous
  Country: US (occurrence: US)
  Receive Date: 20241014
  Receipt Date: 20241014
  Transmission Date: 20250115
  Serious: No
  Sender: PADAGIS
  Company Number: US-PADAGIS-2024PAD01583

PATIENT

DRUGS (2)
  1. NYSTOP [Suspect]
     Active Substance: NYSTATIN
     Indication: Rash
     Dosage: UNK
     Route: 065
  2. IBRANCE [Concomitant]
     Active Substance: PALBOCICLIB
     Indication: Breast cancer metastatic
     Dosage: 75 MG TAKE FOR 21 DAYS THEN OFF FOR 7 DAYS
     Route: 065

REACTIONS (3)
  - Application site pain [Unknown]
  - Rash [Unknown]
  - Drug ineffective for unapproved indication [Unknown]
